FAERS Safety Report 9278810 (Version 1)
Quarter: 2013Q2

REPORT INFORMATION
  Report Type: Spontaneous
  Country: US (occurrence: US)
  Receive Date: 20130508
  Receipt Date: 20130508
  Transmission Date: 20140414
  Serious: Yes (Hospitalization)
  Sender: FDA-Public Use
  Company Number: US-PFIZER INC-2013137603

PATIENT
  Sex: Female

DRUGS (2)
  1. DIFLUCAN [Suspect]
     Dosage: UNK
  2. LIPITOR [Interacting]
     Dosage: UNK

REACTIONS (3)
  - Drug prescribing error [Unknown]
  - Drug interaction [Unknown]
  - Diarrhoea [Unknown]
